FAERS Safety Report 5347453-2 (Version None)
Quarter: 2007Q2

REPORT INFORMATION
  Report Type: 
  Country: None (occurrence: None)
  Receive Date: 20070606
  Receipt Date: 20070515
  Transmission Date: 20071010
  Serious: No
  Sender: FDA-Public Use
  Company Number: US-JNJFOC-20070504535

PATIENT
  Age: 16 Year
  Sex: Male

DRUGS (2)
  1. INVEGA [Suspect]
     Indication: MAJOR DEPRESSION
     Route: 048
  2. SSRI [Concomitant]
     Indication: DEPRESSION
     Route: 048

REACTIONS (1)
  - DYSTONIA [None]
